FAERS Safety Report 6837800-4 (Version None)
Quarter: 2010Q3

REPORT INFORMATION
  Report Type: 
  Country: None (occurrence: None)
  Receive Date: 20100709
  Receipt Date: 20100617
  Transmission Date: 20110219
  Serious: Yes (Death)
  Sender: FDA-Public Use
  Company Number: FKO201000244

PATIENT
  Age: 61 Year
  Sex: Male

DRUGS (4)
  1. DOCETAXEL [Suspect]
     Indication: PRODUCT USED FOR UNKNOWN INDICATION
     Dosage: 80 MG, ONCE TIME, INTRAVENOUS
     Route: 042
     Dates: start: 20100408, end: 20100408
  2. CISPLATIN [Suspect]
     Indication: PRODUCT USED FOR UNKNOWN INDICATION
     Dosage: 75 MG, ONCE TIME), INTRAVENOUS
     Route: 042
     Dates: start: 20100408, end: 20100408
  3. FLUOROURACIL [Suspect]
     Dosage: 750 MG, ONCE TIME, INTRAVENOUS
     Route: 042
     Dates: start: 20100408, end: 20100413
  4. MULTIVITAMIN (MULTIVITAMINS) (MULTIVITAMINS) [Concomitant]

REACTIONS (2)
  - CARDIAC ARREST [None]
  - HYPERPYREXIA [None]
